FAERS Safety Report 17494408 (Version 1)
Quarter: 2020Q1

REPORT INFORMATION
  Report Type: Spontaneous
  Country: DE (occurrence: DE)
  Receive Date: 20200303
  Receipt Date: 20200303
  Transmission Date: 20200409
  Serious: Yes (Hospitalization)
  Sender: FDA-Public Use
  Company Number: DE-JNJFOC-20200238985

PATIENT
  Age: 59 Year
  Sex: Male
  Weight: 87 kg

DRUGS (2)
  1. L-THYROXIN [Concomitant]
     Active Substance: LEVOTHYROXINE SODIUM
     Indication: PULMONARY EMBOLISM
     Dosage: 75 MG, QD
  2. RIVAROXABAN [Suspect]
     Active Substance: RIVAROXABAN
     Indication: PULMONARY EMBOLISM
     Dosage: 20 MG, QD
     Route: 048
     Dates: start: 201603

REACTIONS (4)
  - Haemorrhoid operation [Recovered/Resolved]
  - Knee arthroplasty [Recovered/Resolved]
  - Haemorrhoidal haemorrhage [Recovered/Resolved]
  - Anal prolapse [Recovered/Resolved]

NARRATIVE: CASE EVENT DATE: 20170915
